FAERS Safety Report 8189678-7 (Version None)
Quarter: 2012Q1

REPORT INFORMATION
  Report Type: 
  Country: None (occurrence: None)
  Receive Date: 20120307
  Receipt Date: 20120224
  Transmission Date: 20120608
  Serious: Yes (Life-Threatening)
  Sender: FDA-Public Use
  Company Number: RS-COVIDIEN/TYCO HEALTHCARE/MALLINCKRODT-T201200779

PATIENT
  Sex: Female
  Weight: 72 kg

DRUGS (3)
  1. EXALGO [Suspect]
     Indication: CANCER PAIN
     Dosage: 8 MG, UNK
     Route: 048
     Dates: start: 20120110, end: 20120110
  2. DIAZEPAM [Concomitant]
     Dosage: UNK
  3. ORAMORPH SR [Concomitant]
     Dosage: UNK

REACTIONS (3)
  - ERYTHEMA [None]
  - PARAESTHESIA ORAL [None]
  - OROPHARYNGEAL DISCOMFORT [None]
